FAERS Safety Report 8420191-5 (Version None)
Quarter: 2012Q2

REPORT INFORMATION
  Report Type: 
  Country: None (occurrence: None)
  Receive Date: 20120323
  Receipt Date: 20111206
  Transmission Date: 20120825
  Serious: Yes (Hospitalization)
  Sender: FDA-Public Use
  Company Number: 163-21880-11121360

PATIENT
  Age: 63 Year
  Sex: Female

DRUGS (8)
  1. REVLIMID [Suspect]
     Indication: MYELODYSPLASTIC SYNDROME
     Dosage: 5 MG, QD X 21/28 DAYS, PO
     Route: 048
     Dates: start: 20111101
  2. REVLIMID [Suspect]
     Indication: MYELODYSPLASTIC SYNDROME
     Dosage: 5 MG, QD X 21/28 DAYS, PO
     Route: 048
     Dates: start: 20111101
  3. INDOMETHACIN [Concomitant]
  4. ACTEMRA [Concomitant]
  5. HYDROXYCHLOROQUINE SULFATE [Concomitant]
  6. MYCOPHENOLATE MOFETIL [Concomitant]
  7. PREDNISONE TAB [Concomitant]
  8. LEFLUNOMIDE [Concomitant]

REACTIONS (3)
  - NAUSEA [None]
  - DIZZINESS [None]
  - HYPOAESTHESIA [None]
